FAERS Safety Report 16993195 (Version 2)
Quarter: 2020Q1

REPORT INFORMATION
  Report Type: Report from Study
  Country: IT (occurrence: IT)
  Receive Date: 20191105
  Receipt Date: 20200129
  Transmission Date: 20200409
  Serious: Yes (Death, Hospitalization)
  Sender: FDA-Public Use
  Company Number: IT-ROCHE-2337166

PATIENT
  Age: 52 Year
  Sex: Female
  Weight: 55 kg

DRUGS (5)
  1. VEMURAFENIB. [Suspect]
     Active Substance: VEMURAFENIB
     Indication: METASTATIC MALIGNANT MELANOMA
     Route: 048
     Dates: start: 20181127
  2. COBIMETINIB. [Suspect]
     Active Substance: COBIMETINIB
     Indication: METASTATIC MALIGNANT MELANOMA
     Route: 048
     Dates: start: 20181127
  3. MICROFLEB [Concomitant]
     Indication: LYMPHOEDEMA
     Route: 065
     Dates: start: 20190416
  4. NICETILE [Concomitant]
     Active Substance: LEVACECARNINE HYDROCHLORIDE
     Indication: LYMPHOEDEMA
     Route: 065
     Dates: start: 20190416
  5. ANANASE [Concomitant]
     Active Substance: BROMELAINS
     Indication: LYMPHOEDEMA
     Route: 065
     Dates: start: 20190416

REACTIONS (2)
  - Pain [Not Recovered/Not Resolved]
  - Disease progression [Fatal]

NARRATIVE: CASE EVENT DATE: 20190611
